FAERS Safety Report 14876851 (Version 2)
Quarter: 2018Q2

REPORT INFORMATION
  Report Type: Spontaneous
  Country: US (occurrence: US)
  Receive Date: 20180510
  Receipt Date: 20180619
  Transmission Date: 20180711
  Serious: Yes (Other)
  Sender: FDA-Public Use
  Company Number: US-OTSUKA-2018_010923

PATIENT
  Sex: Male

DRUGS (2)
  1. ABILIFY MAINTENA [Suspect]
     Active Substance: ARIPIPRAZOLE
     Indication: SCHIZOPHRENIA
     Dosage: 400 MG, QM
     Route: 065
  2. ABILIFY [Suspect]
     Active Substance: ARIPIPRAZOLE
     Indication: SCHIZOPHRENIA
     Dosage: UNK
     Route: 065

REACTIONS (7)
  - Treatment noncompliance [Unknown]
  - Glaucoma [Unknown]
  - Strabismus [Unknown]
  - Visual impairment [Recovering/Resolving]
  - Deafness [Not Recovered/Not Resolved]
  - Cataract [Unknown]
  - Weight decreased [Not Recovered/Not Resolved]
